FAERS Safety Report 12858419 (Version 2)
Quarter: 2017Q1

REPORT INFORMATION
  Report Type: Spontaneous
  Country: US (occurrence: US)
  Receive Date: 20161018
  Receipt Date: 20170105
  Transmission Date: 20170428
  Serious: Yes (Hospitalization, Other)
  Sender: FDA-Public Use
  Company Number: US-SAOL THERAPEUTICS-2016SAO00892

PATIENT
  Age: 69 Year
  Sex: Male

DRUGS (3)
  1. COMPOUNDED BACLOFEN [Suspect]
     Active Substance: BACLOFEN
     Indication: MUSCLE SPASTICITY
     Dosage: 7253.7 ?G, \DAY
     Route: 037
  2. MORPHINE [Suspect]
     Active Substance: MORPHINE
     Dosage: 20.87 MG, \DAY
     Route: 037
  3. MORPHINE [Suspect]
     Active Substance: MORPHINE
     Dosage: 19 MG, \DAY

REACTIONS (6)
  - Therapeutic response decreased [Unknown]
  - Fall [Unknown]
  - Pain [Unknown]
  - Medical device site granuloma [Recovered/Resolved]
  - Device dislocation [Unknown]
  - Device failure [Unknown]

NARRATIVE: CASE EVENT DATE: 2014
